FAERS Safety Report 8329211-X (Version None)
Quarter: 2012Q2

REPORT INFORMATION
  Report Type: 
  Country: None (occurrence: None)
  Receive Date: 20120502
  Receipt Date: 20120423
  Transmission Date: 20120825
  Serious: Yes (Hospitalization)
  Sender: FDA-Public Use
  Company Number: JP-FRI-1000030076

PATIENT
  Age: 57 Year
  Sex: Female

DRUGS (1)
  1. MEMANTINE HCL [Suspect]
     Indication: DEMENTIA
     Dosage: 15 MG
     Route: 048
     Dates: start: 20120301, end: 20120401

REACTIONS (1)
  - JAUNDICE [None]
